FAERS Safety Report 24629574 (Version 1)
Quarter: 2024Q4

REPORT INFORMATION
  Report Type: Report from Study
  Country: AE (occurrence: AE)
  Receive Date: 20241118
  Receipt Date: 20241118
  Transmission Date: 20250115
  Serious: Yes (Other)
  Sender: ROCHE
  Company Number: AE-ROCHE-10000132352

PATIENT
  Age: 45 Year
  Sex: Female

DRUGS (1)
  1. PHESGO [Suspect]
     Active Substance: HYALURONIDASE-ZZXF\PERTUZUMAB\TRASTUZUMAB
     Indication: Product used for unknown indication
     Route: 065

REACTIONS (5)
  - Mastectomy [Unknown]
  - Dyspnoea [Unknown]
  - Goitre [Unknown]
  - Cyst [Unknown]
  - Thyroidectomy [Unknown]
